FAERS Safety Report 10266191 (Version 1)
Quarter: 2014Q2

REPORT INFORMATION
  Report Type: Spontaneous
  Country: US (occurrence: US)
  Receive Date: 20140627
  Receipt Date: 20140627
  Transmission Date: 20141212
  Serious: Yes (Other)
  Sender: FDA-Public Use
  Company Number: US-ABBVIE-14P-163-1251262-00

PATIENT
  Age: 27 Year
  Sex: Female
  Weight: 68.55 kg

DRUGS (4)
  1. SYNTHROID [Suspect]
     Indication: HYPOTHYROIDISM
     Dates: start: 2013
  2. SYNTHROID [Suspect]
     Indication: HYPOTHYROIDISM
     Dates: start: 2012
  3. CYTOMEL [Concomitant]
     Indication: HYPOTHYROIDISM
  4. PHENTERMINE [Concomitant]
     Indication: WEIGHT DECREASED

REACTIONS (9)
  - Abortion spontaneous [Unknown]
  - Coeliac disease [Not Recovered/Not Resolved]
  - Abdominal distension [Recovering/Resolving]
  - Constipation [Recovering/Resolving]
  - Increased tendency to bruise [Recovering/Resolving]
  - Weight loss poor [Not Recovered/Not Resolved]
  - Coeliac disease [Not Recovered/Not Resolved]
  - Alopecia [Not Recovered/Not Resolved]
  - Fatigue [Not Recovered/Not Resolved]
